FAERS Safety Report 5516166-6 (Version None)
Quarter: 2007Q4

REPORT INFORMATION
  Report Type: 
  Country: None (occurrence: None)
  Receive Date: 20071109
  Receipt Date: 20071029
  Transmission Date: 20080405
  Serious: Yes (Other)
  Sender: FDA-Public Use
  Company Number: A-CH2007-18308

PATIENT
  Age: 37 Year
  Sex: Female
  Weight: 84.4 kg

DRUGS (7)
  1. TRACLEER [Suspect]
     Indication: PULMONARY HYPERTENSION
     Dosage: 125 MG, BID, ORAL ; 62.5 MG, BID, ORAL
     Route: 048
     Dates: start: 20061107, end: 20061217
  2. TRACLEER [Suspect]
     Indication: PULMONARY HYPERTENSION
     Dosage: 125 MG, BID, ORAL ; 62.5 MG, BID, ORAL
     Route: 048
     Dates: start: 20061218, end: 20071023
  3. HALDOL [Concomitant]
  4. LORAZEPAM [Concomitant]
  5. MARCUMAR [Concomitant]
  6. CLOPIXOL (ZUCLOPENTHIXOL) [Concomitant]
  7. ZOLPIDEM TARTRATE [Concomitant]

REACTIONS (1)
  - ENDARTERECTOMY [None]
